FAERS Safety Report 18882673 (Version 2)
Quarter: 2021Q1

REPORT INFORMATION
  Report Type: Spontaneous
  Country: US (occurrence: US)
  Receive Date: 20210211
  Receipt Date: 20210222
  Transmission Date: 20210420
  Serious: Yes (Hospitalization, Other)
  Sender: FDA-Public Use
  Company Number: US-B.I. PHARMACEUTICALS,INC./RIDGEFIELD-2021-BI-082690

PATIENT
  Age: 63 Year
  Sex: Male

DRUGS (3)
  1. IBUPROFEN. [Suspect]
     Active Substance: IBUPROFEN
     Indication: OVERDOSE
     Route: 065
  2. MOBIC [Suspect]
     Active Substance: MELOXICAM
     Indication: OVERDOSE
     Route: 065
  3. CYCLOBENZAPRINE. [Suspect]
     Active Substance: CYCLOBENZAPRINE
     Indication: OVERDOSE
     Route: 065

REACTIONS (16)
  - Anticholinergic syndrome [Unknown]
  - Atrial fibrillation [Recovered/Resolved]
  - Mental disorder [Unknown]
  - Delirium [Recovering/Resolving]
  - Retching [Unknown]
  - Constipation [Unknown]
  - Electrocardiogram ST segment elevation [Recovered/Resolved]
  - Overdose [Unknown]
  - Diarrhoea [Unknown]
  - Abdominal distension [Unknown]
  - Ileus [Recovered/Resolved]
  - Agitation [Unknown]
  - Dyspnoea [Unknown]
  - Overdose [Recovered/Resolved]
  - Disorientation [Unknown]
  - Nausea [Unknown]
